FAERS Safety Report 19077696 (Version 1)
Quarter: 2021Q1

REPORT INFORMATION
  Report Type: Spontaneous
  Country: US (occurrence: US)
  Receive Date: 20210331
  Receipt Date: 20210331
  Transmission Date: 20210420
  Serious: Yes (Hospitalization, Other)
  Sender: FDA-Public Use
  Company Number: US-ADVANZ PHARMA-202103002228

PATIENT

DRUGS (7)
  1. HOMATROPINE [Suspect]
     Active Substance: HOMATROPINE HYDROBROMIDE
     Indication: KERATOCONUS
     Dosage: UNK
  2. ALCAFTADINE [Concomitant]
     Active Substance: ALCAFTADINE
     Indication: KERATOCONUS
  3. DORZOLAMIDE [Concomitant]
     Active Substance: DORZOLAMIDE
     Indication: KERATOCONUS
  4. BRIMONIDINE [Suspect]
     Active Substance: BRIMONIDINE TARTRATE
     Indication: KERATOCONUS
     Dosage: UNK
  5. PREDNISOLONE. [Suspect]
     Active Substance: PREDNISOLONE
     Indication: KERATOCONUS
     Dosage: UNK
  6. SODIUM CHLORIDE. [Suspect]
     Active Substance: SODIUM CHLORIDE
     Indication: KERATOCONUS
     Dosage: SOLUTION
     Route: 061
  7. TIMOLOL. [Suspect]
     Active Substance: TIMOLOL
     Indication: KERATOCONUS
     Dosage: UNK

REACTIONS (2)
  - Condition aggravated [Recovering/Resolving]
  - Keratoconus [Recovering/Resolving]
